FAERS Safety Report 6974972-5 (Version None)
Quarter: 2010Q3

REPORT INFORMATION
  Report Type: 
  Country: None (occurrence: None)
  Receive Date: 20100909
  Receipt Date: 20090120
  Transmission Date: 20110219
  Serious: No
  Sender: FDA-Public Use
  Company Number: US-WYE-H07792709

PATIENT
  Sex: Male

DRUGS (5)
  1. PRISTIQ [Suspect]
     Indication: STRESS
     Route: 048
     Dates: start: 20090116
  2. PRISTIQ [Suspect]
     Indication: DEPRESSION
  3. LIPITOR [Concomitant]
  4. PLAVIX [Concomitant]
  5. PANTOPRAZOLE [Concomitant]

REACTIONS (2)
  - AGGRESSION [None]
  - IMPULSE-CONTROL DISORDER [None]
